FAERS Safety Report 9215373 (Version 4)
Quarter: 2013Q2

REPORT INFORMATION
  Report Type: Spontaneous
  Country: US (occurrence: US)
  Receive Date: 20130405
  Receipt Date: 20130425
  Transmission Date: 20140414
  Serious: Yes (Death, Life-Threatening, Hospitalization, Other)
  Sender: FDA-Public Use
  Company Number: US-B.I. PHARMACEUTICALS,INC./RIDGEFIELD-2013-BI-09011BP

PATIENT
  Age: 77 Year
  Sex: Male
  Weight: 84 kg

DRUGS (13)
  1. PRADAXA [Suspect]
     Indication: CEREBROVASCULAR ACCIDENT PROPHYLAXIS
     Dosage: 150 MG
     Route: 048
     Dates: end: 20130301
  2. PRADAXA [Suspect]
     Indication: ATRIAL FIBRILLATION
     Dosage: 300 MG
     Route: 048
     Dates: start: 20130301, end: 20130319
  3. ASPIRIN [Concomitant]
     Dosage: 325 MG
  4. LEVOTHYROXINE [Concomitant]
  5. SYNTHROID [Concomitant]
  6. ATORVASTATIN [Concomitant]
     Dosage: 80 MG
  7. FUROSEMIDE [Concomitant]
     Dosage: 40 MG
  8. DIGOXIN [Concomitant]
     Dosage: 0.125 MG
  9. AMLODIPINE [Concomitant]
     Dosage: 10 MG
  10. METOPROLOL SUCCINATE [Concomitant]
     Dosage: 200 MG
  11. TERAZOSIN [Concomitant]
     Dosage: 5 MG
  12. FINASTERIDE [Concomitant]
     Dosage: 5 MG
  13. BACTRIM [Concomitant]

REACTIONS (5)
  - Intracranial aneurysm [Fatal]
  - Haemorrhage intracranial [Fatal]
  - Aortic dissection [Unknown]
  - Haemorrhage intracranial [Unknown]
  - Atrial thrombosis [Unknown]
